FAERS Safety Report 21311870 (Version 1)
Quarter: 2022Q3

REPORT INFORMATION
  Report Type: Spontaneous
  Country: US (occurrence: US)
  Receive Date: 20220909
  Receipt Date: 20220909
  Transmission Date: 20221027
  Serious: No
  Sender: FDA-Public Use
  Company Number: US-BRISTOL-MYERS SQUIBB COMPANY-2022-102445

PATIENT
  Age: 60 Year
  Sex: Female

DRUGS (1)
  1. SPRYCEL [Suspect]
     Active Substance: DASATINIB
     Indication: Myelofibrosis
     Dosage: ONGOING
     Route: 048
     Dates: start: 20201015

REACTIONS (4)
  - Decreased appetite [Unknown]
  - Flatulence [Unknown]
  - Abdominal distension [Unknown]
  - Intentional product use issue [Unknown]
